FAERS Safety Report 6724842-2 (Version None)
Quarter: 2010Q2

REPORT INFORMATION
  Report Type: 
  Country: None (occurrence: None)
  Receive Date: 20100513
  Receipt Date: 20100513
  Transmission Date: 20101027
  Serious: Yes (Other)
  Sender: FDA-Public Use
  Company Number: None

PATIENT
  Sex: Female

DRUGS (1)
  1. TIMOPTIC IN OCUDOSE [Suspect]
     Indication: GLAUCOMA
     Dosage: 1 DROP IN EACH EYE TWICE DAILY OPHTHALMIC
     Route: 047
     Dates: start: 20100308, end: 20100309

REACTIONS (1)
  - EYE IRRITATION [None]
